FAERS Safety Report 20591055 (Version 1)
Quarter: 2022Q1

REPORT INFORMATION
  Report Type: Spontaneous
  Country: US (occurrence: None)
  Receive Date: 20220314
  Receipt Date: 20220314
  Transmission Date: 20220423
  Serious: Yes (Death)
  Sender: FDA-Public Use
  Company Number: None

PATIENT
  Age: 84 Year
  Sex: Male

DRUGS (1)
  1. REVLIMID [Suspect]
     Active Substance: LENALIDOMIDE
     Indication: Non-Hodgkin^s lymphoma
     Dosage: FREQUENCY : DAILY;?
     Route: 048
     Dates: start: 20220114, end: 20220303

REACTIONS (4)
  - Epistaxis [None]
  - Acute kidney injury [None]
  - Hypercalcaemia [None]
  - Hyperkalaemia [None]

NARRATIVE: CASE EVENT DATE: 20220306
